FAERS Safety Report 10380258 (Version 1)
Quarter: 2014Q3

REPORT INFORMATION
  Report Type: Spontaneous
  Country: US (occurrence: None)
  Receive Date: 20140811
  Receipt Date: 20140811
  Transmission Date: 20150326
  Serious: No
  Sender: FDA-Public Use
  Company Number: None

PATIENT
  Age: 68 Year
  Sex: Male
  Weight: 101.15 kg

DRUGS (1)
  1. XARELTO [Suspect]
     Active Substance: RIVAROXABAN
     Indication: THROMBOSIS
     Dosage: XERALTO  ONCE DAIY TAKEN BY MOUTH
     Route: 048
     Dates: start: 20140702

REACTIONS (2)
  - Blood glucose increased [None]
  - Blood glucose fluctuation [None]
